FAERS Safety Report 5230411-6 (Version None)
Quarter: 2007Q1

REPORT INFORMATION
  Report Type: 
  Country: None (occurrence: None)
  Receive Date: 20070206
  Receipt Date: 20070123
  Transmission Date: 20070707
  Serious: Yes (Other)
  Sender: FDA-Public Use
  Company Number: FR-ELI_LILLY_AND_COMPANY-FR200612000485

PATIENT
  Age: 77 Year
  Sex: Female
  Weight: 52 kg

DRUGS (5)
  1. FORTEO [Suspect]
     Indication: OSTEOPOROSIS
     Dosage: 20 UG, DAILY (1/D)
     Route: 058
     Dates: start: 20060928, end: 20061031
  2. NAPROSYN [Concomitant]
     Indication: BACK PAIN
     Dosage: 500 MG, 2/D
     Route: 048
     Dates: start: 20060223, end: 20061031
  3. CALCIDOSE [Concomitant]
     Indication: OSTEOPOROSIS
     Dosage: 500 MG, 2/D
     Route: 048
     Dates: start: 20060223
  4. LANZOR [Concomitant]
     Indication: BACK PAIN
     Dosage: 15 MG, DAILY (1/D)
     Route: 048
     Dates: start: 20060223
  5. DOLIPRANE [Concomitant]
     Indication: BACK PAIN
     Dosage: 3 G, DAILY (1/D)
     Route: 048
     Dates: start: 20060223

REACTIONS (1)
  - IRON DEFICIENCY ANAEMIA [None]
